FAERS Safety Report 4635120-X (Version None)
Quarter: 2005Q2

REPORT INFORMATION
  Report Type: 
  Country: None (occurrence: None)
  Receive Date: 20050414
  Receipt Date: 20030211
  Transmission Date: 20051028
  Serious: Yes (Hospitalization, Other)
  Sender: FDA-Public Use
  Company Number: A0531914A

PATIENT
  Age: 63 Year
  Sex: Male
  Weight: 75 kg

DRUGS (14)
  1. COMMIT [Suspect]
     Dosage: 4MG UNKNOWN
     Route: 002
     Dates: start: 20030210, end: 20030101
  2. SUPER POLIGRIP ORIGINAL DENTURE ADHESIVE CREAM [Concomitant]
     Indication: TOOTH DISORDER
  3. POTASSIUM CHLORIDE [Concomitant]
     Dosage: 20MEQ PER DAY
     Route: 048
  4. LASIX [Concomitant]
     Dosage: 20MG PER DAY
     Route: 048
  5. VALPROIC ACID [Concomitant]
     Dosage: 750MG TWICE PER DAY
     Route: 048
  6. VOLTAREN [Concomitant]
     Dosage: 75MG PER DAY
     Route: 048
  7. XANAX [Concomitant]
     Indication: ANXIETY
     Dosage: .5MG PER DAY
     Route: 048
  8. LORAZEPAM [Concomitant]
     Route: 048
  9. QUININE SULFATE [Concomitant]
     Route: 048
  10. ALBUTEROL [Concomitant]
     Route: 055
  11. TEMAZEPAM [Concomitant]
     Route: 048
  12. IBUPROFEN [Concomitant]
  13. SAW PALMETTO [Concomitant]
     Route: 048
  14. VICODIN [Concomitant]
     Route: 048

REACTIONS (17)
  - AORTIC STENOSIS [None]
  - CARDIAC FAILURE CONGESTIVE [None]
  - CARDIOMYOPATHY [None]
  - CORONARY ARTERY DISEASE [None]
  - DILATATION VENTRICULAR [None]
  - EJECTION FRACTION DECREASED [None]
  - ELECTROCARDIOGRAM ST-T SEGMENT ABNORMAL [None]
  - GALLOP RHYTHM PRESENT [None]
  - HICCUPS [None]
  - HYPOKINESIA [None]
  - MYOCARDIAL INFARCTION [None]
  - PALPITATIONS [None]
  - PULMONARY HYPERTENSION [None]
  - QRS AXIS ABNORMAL [None]
  - RIGHT VENTRICULAR SYSTOLIC PRESSURE INCREASED [None]
  - VASCULAR CALCIFICATION [None]
  - VENTRICULAR DYSFUNCTION [None]
